FAERS Safety Report 7150496-X (Version None)
Quarter: 2010Q4

REPORT INFORMATION
  Report Type: 
  Country: None (occurrence: None)
  Receive Date: 20101124
  Receipt Date: 20101110
  Transmission Date: 20110411
  Serious: Yes (Hospitalization)
  Sender: FDA-Public Use
  Company Number: UTC-002227

PATIENT
  Age: 68 Year
  Sex: Female
  Weight: 114 kg

DRUGS (3)
  1. REMODULIN [Suspect]
     Indication: PULMONARY ARTERIAL HYPERTENSION
     Dosage: 29.16 UG/KG (0.02025 UG/KG, 1 IN 1 MIN),INTRAVENOUS
     Route: 042
     Dates: start: 20100701
  2. ADCIRCA [Concomitant]
  3. TRACLEER [Concomitant]

REACTIONS (1)
  - OXYGEN SATURATION DECREASED [None]
